FAERS Safety Report 7146049-X (Version None)
Quarter: 2010Q4

REPORT INFORMATION
  Report Type: 
  Country: None (occurrence: None)
  Receive Date: 20101208
  Receipt Date: 20101202
  Transmission Date: 20110411
  Serious: Yes (Death, Other)
  Sender: FDA-Public Use
  Company Number: FR-BRISTOL-MYERS SQUIBB COMPANY-15420912

PATIENT
  Age: 79 Year
  Sex: Female

DRUGS (10)
  1. COUMADIN [Suspect]
     Indication: ATRIAL FIBRILLATION
     Dosage: FOR SEVERAL YEARS
     Route: 048
  2. CORDARONE [Concomitant]
  3. FENOFIBRATE [Concomitant]
  4. BUMEX [Concomitant]
  5. SERESTA [Concomitant]
  6. FORLAX [Concomitant]
  7. SPIRONOLACTONE [Concomitant]
  8. LEVOTHYROX [Concomitant]
  9. SOLUPRED [Concomitant]
  10. NEXIUM [Concomitant]

REACTIONS (3)
  - CARDIO-RESPIRATORY ARREST [None]
  - FALL [None]
  - INTERNATIONAL NORMALISED RATIO INCREASED [None]
